FAERS Safety Report 9408284 (Version 1)
Quarter: 2013Q3

REPORT INFORMATION
  Report Type: Spontaneous
  Country: IN (occurrence: IN)
  Receive Date: 20130718
  Receipt Date: 20130718
  Transmission Date: 20140515
  Serious: Yes (Hospitalization, Other)
  Sender: FDA-Public Use
  Company Number: PHHY2013IN075626

PATIENT
  Age: 4 Year
  Sex: Male

DRUGS (1)
  1. RIFAMPICIN [Suspect]
     Dosage: 600 MG, UNK

REACTIONS (12)
  - Red man syndrome [Recovering/Resolving]
  - Abdominal pain [Recovering/Resolving]
  - Nausea [Recovering/Resolving]
  - Flushing [Recovered/Resolved]
  - Pyrexia [Recovering/Resolving]
  - Pruritus [Recovering/Resolving]
  - Periorbital oedema [Recovered/Resolved]
  - Tear discolouration [Recovering/Resolving]
  - Chromaturia [Recovering/Resolving]
  - Urticaria [Recovered/Resolved]
  - Transaminases increased [Recovered/Resolved]
  - Accidental overdose [Unknown]
